FAERS Safety Report 9297759 (Version 1)
Quarter: 2013Q2

REPORT INFORMATION
  Report Type: Spontaneous
  Country: US (occurrence: None)
  Receive Date: 20130515
  Receipt Date: 20130515
  Transmission Date: 20140414
  Serious: Yes (Hospitalization, Other)
  Sender: FDA-Public Use
  Company Number: JPI-P-031701

PATIENT
  Age: 56 Year
  Sex: Female

DRUGS (7)
  1. XYREM [Suspect]
     Indication: CATAPLEXY
     Dosage: (2.25 GM, 2 IN 1 D)
     Route: 048
     Dates: start: 20130220, end: 2013
  2. ZICONOTIDE [Suspect]
     Route: 037
     Dates: start: 2013
  3. HYDROMORPHONE [Suspect]
     Route: 037
  4. OXYCODONE [Concomitant]
  5. ARMODAFINIL [Concomitant]
  6. TOLTERODINE TARTRATE [Concomitant]
  7. UNSPECIFIED SEIZURE MEDICATIONS [Concomitant]

REACTIONS (6)
  - Pneumonia [None]
  - Pneumonitis [None]
  - Respiratory distress [None]
  - Sepsis [None]
  - Renal failure [None]
  - Weight decreased [None]
